FAERS Safety Report 20200104 (Version 1)
Quarter: 2021Q4

REPORT INFORMATION
  Report Type: Spontaneous
  Country: US (occurrence: None)
  Receive Date: 20211217
  Receipt Date: 20211217
  Transmission Date: 20220303
  Serious: Yes (Hospitalization, Disabling)
  Sender: FDA-Public Use
  Company Number: None

PATIENT
  Age: 70 Year
  Sex: Male

DRUGS (8)
  1. LYNPARZA [Suspect]
     Active Substance: OLAPARIB
     Indication: Prostate cancer
     Dosage: FREQUENCY : TWICE A DAY;?
     Route: 048
     Dates: start: 20201210
  2. DICLOFENAC [Concomitant]
     Active Substance: DICLOFENAC
  3. FLUTICASONE 50MCG NASAL SP (120) RX [Concomitant]
  4. MUPIROCIN [Concomitant]
     Active Substance: MUPIROCIN
  5. OLAPATADINE 0.1% OPTH SOLN 5ML [Concomitant]
  6. TRELSTAR MIX 11.25MG INJ, 1 VIAL [Concomitant]
  7. TRUE METRIX BLOOD GLUCOSE TEST STRP [Concomitant]
  8. VITAMIN D3 1,000 UNIT TABLETS [Concomitant]

REACTIONS (1)
  - Urinary tract infection [None]

NARRATIVE: CASE EVENT DATE: 20211209
